FAERS Safety Report 9005619 (Version 1)
Quarter: 2013Q1

REPORT INFORMATION
  Report Type: Spontaneous
  Country: US (occurrence: US)
  Receive Date: 20130109
  Receipt Date: 20130109
  Transmission Date: 20140127
  Serious: Yes (Hospitalization)
  Sender: FDA-Public Use
  Company Number: US-MERCK-1301USA001991

PATIENT
  Age: 75 Year
  Sex: Female

DRUGS (7)
  1. SINGULAIR [Suspect]
     Indication: ASTHMA
  2. LOSARTAN POTASSIUM AND HYDROCHLOROTHIAZIDE [Suspect]
     Indication: ATRIAL FIBRILLATION
     Dosage: 100 MG, 1X PER 1DAY
     Route: 048
  3. CORDARONE [Suspect]
     Indication: ESSENTIAL HYPERTENSION
     Dosage: 600 MG, TID
     Route: 048
  4. CALCIMAGON [Concomitant]
  5. NEXIUM [Concomitant]
  6. FOSAMAX [Concomitant]
  7. SINTROM [Concomitant]

REACTIONS (9)
  - Vomiting [Unknown]
  - Renal impairment [Unknown]
  - Nausea [Unknown]
  - Inappropriate antidiuretic hormone secretion [Unknown]
  - Hypothyroidism [Unknown]
  - Hyponatraemia [Unknown]
  - General physical health deterioration [Unknown]
  - Drug intolerance [Unknown]
  - Condition aggravated [Unknown]
